FAERS Safety Report 17456627 (Version 1)
Quarter: 2020Q1

REPORT INFORMATION
  Report Type: Spontaneous
  Country: US (occurrence: US)
  Receive Date: 20200225
  Receipt Date: 20200225
  Transmission Date: 20200409
  Serious: Yes (Hospitalization, Other)
  Sender: FDA-Public Use
  Company Number: US-PFIZER INC-2020081873

PATIENT
  Age: 53 Year
  Sex: Female
  Weight: 97.51 kg

DRUGS (1)
  1. XELJANZ XR [Suspect]
     Active Substance: TOFACITINIB CITRATE
     Indication: RHEUMATOID ARTHRITIS
     Dosage: 11 MG, DAILY
     Route: 048
     Dates: start: 201710, end: 202001

REACTIONS (3)
  - Renal failure [Recovering/Resolving]
  - Condition aggravated [Recovering/Resolving]
  - Cystitis [Recovering/Resolving]
